FAERS Safety Report 18682769 (Version 1)
Quarter: 2020Q4

REPORT INFORMATION
  Report Type: Spontaneous
  Country: GB (occurrence: GB)
  Receive Date: 20201230
  Receipt Date: 20201230
  Transmission Date: 20210114
  Serious: Yes (Other)
  Sender: FDA-Public Use
  Company Number: GB-TEVA-2020-GB-1863353

PATIENT
  Age: 18 Year
  Sex: Female

DRUGS (3)
  1. PREGABALIN. [Concomitant]
     Active Substance: PREGABALIN
  2. FLUOXETINE [Suspect]
     Active Substance: FLUOXETINE HYDROCHLORIDE
     Indication: SEROTONIN SYNDROME
     Dosage: 20 MG
     Route: 048
  3. SERTRALINE [Suspect]
     Active Substance: SERTRALINE HYDROCHLORIDE
     Indication: SEROTONIN SYNDROME
     Dosage: 25 MG
     Route: 048

REACTIONS (8)
  - Restlessness [Unknown]
  - Malaise [Unknown]
  - Muscle twitching [Unknown]
  - Tic [Unknown]
  - Tremor [Unknown]
  - Irritability [Unknown]
  - Serotonin syndrome [Recovering/Resolving]
  - Serotonin syndrome [Unknown]

NARRATIVE: CASE EVENT DATE: 20201210
